FAERS Safety Report 10677222 (Version 2)
Quarter: 2014Q4

REPORT INFORMATION
  Report Type: Spontaneous
  Country: BR (occurrence: BR)
  Receive Date: 20141226
  Receipt Date: 20141226
  Transmission Date: 20150529
  Serious: Yes (Hospitalization, Other)
  Sender: FDA-Public Use
  Company Number: BR-DSJP-DSU-2014-125812

PATIENT

DRUGS (13)
  1. OMEPRAZOLE. [Concomitant]
     Active Substance: OMEPRAZOLE
     Indication: OESOPHAGITIS
     Dosage: UNK
  2. PANTOGAR                           /00630501/ [Concomitant]
     Indication: HAIR DISORDER
     Dosage: UNK
     Dates: start: 2012
  3. PANTOGAR                           /00630501/ [Concomitant]
     Indication: NAIL DISORDER
  4. GLYCEROL [Concomitant]
     Active Substance: GLYCERIN
     Indication: CONSTIPATION
     Dosage: UNK
     Dates: start: 201406
  5. NATURETTI [Concomitant]
     Active Substance: HERBALS
     Indication: PRODUCT USED FOR UNKNOWN INDICATION
     Dosage: ONE OR TWO TIMES PER WEEK
     Dates: start: 1994
  6. LACTIUM [Concomitant]
     Indication: PRODUCT USED FOR UNKNOWN INDICATION
  7. ARTRODAR [Concomitant]
     Active Substance: DIACEREIN
     Indication: OSTEOARTHRITIS
     Dosage: ONE UNIT AT LUNCH
     Dates: start: 20141215
  8. OLMETEC [Suspect]
     Active Substance: OLMESARTAN MEDOXOMIL
     Indication: PRODUCT USED FOR UNKNOWN INDICATION
     Dosage: 1 DF, UNK
     Route: 048
  9. RITMONEURAN [Concomitant]
     Indication: PRODUCT USED FOR UNKNOWN INDICATION
     Dosage: ONE UNIT IN THE MORNING
     Dates: start: 201406
  10. OLMETEC HCT [Suspect]
     Active Substance: HYDROCHLOROTHIAZIDE\OLMESARTAN MEDOXOMIL
     Indication: HYPERTENSION
     Dosage: 20 MG, BY THE MORNING
     Route: 048
     Dates: start: 2000
  11. ATORVASTATIN CALCIUM W/EZETIMIBE [Concomitant]
     Indication: BLOOD CHOLESTEROL
     Dosage: 11/5 MG
     Dates: start: 1996
  12. MELOX [Concomitant]
     Active Substance: MELOXICAM
     Indication: PRODUCT USED FOR UNKNOWN INDICATION
     Dosage: UNK
     Dates: start: 20141215
  13. OMEGA 3                            /01333901/ [Concomitant]
     Indication: PRODUCT USED FOR UNKNOWN INDICATION
     Dosage: 1 DF, UNK
     Dates: start: 2013

REACTIONS (12)
  - Drug administration error [Recovered/Resolved]
  - Herpes virus infection [Unknown]
  - Coeliac disease [Unknown]
  - No adverse event [Recovered/Resolved]
  - Intervertebral disc protrusion [Unknown]
  - Rash papular [Unknown]
  - Lactose intolerance [Unknown]
  - Ankle fracture [Unknown]
  - Immunodeficiency [Unknown]
  - Breast cancer [Unknown]
  - Arthralgia [Unknown]
  - Pain in extremity [Not Recovered/Not Resolved]

NARRATIVE: CASE EVENT DATE: 2007
